FAERS Safety Report 7970880-1 (Version None)
Quarter: 2011Q4

REPORT INFORMATION
  Report Type: 
  Country: None (occurrence: None)
  Receive Date: 20111212
  Receipt Date: 20111202
  Transmission Date: 20120403
  Serious: Yes (Hospitalization)
  Sender: FDA-Public Use
  Company Number: DE-GLAXOSMITHKLINE-D0073278A

PATIENT
  Sex: Female
  Weight: 67 kg

DRUGS (3)
  1. PROMACTA [Suspect]
     Indication: AUTOIMMUNE THROMBOCYTOPENIA
     Dosage: 75MG PER DAY
     Route: 048
     Dates: start: 20100501
  2. PREDNISONE [Concomitant]
     Indication: AUTOIMMUNE THROMBOCYTOPENIA
     Route: 065
  3. HEPARIN [Suspect]
     Indication: THROMBOPHLEBITIS
     Route: 058
     Dates: start: 20111024, end: 20111026

REACTIONS (9)
  - PLATELET COUNT INCREASED [None]
  - THROMBOCYTOSIS [None]
  - HAEMATURIA [None]
  - HAEMATOCHEZIA [None]
  - DRUG INEFFECTIVE [None]
  - PLATELET COUNT ABNORMAL [None]
  - THROMBOCYTOPENIA [None]
  - TOXICITY TO VARIOUS AGENTS [None]
  - THROMBOPHLEBITIS [None]
